FAERS Safety Report 21350611 (Version 1)
Quarter: 2022Q3

REPORT INFORMATION
  Report Type: Spontaneous
  Country: CN (occurrence: CN)
  Receive Date: 20220919
  Receipt Date: 20220919
  Transmission Date: 20221027
  Serious: Yes (Other)
  Sender: FDA-Public Use
  Company Number: CN-PFIZER INC-PV202200063819

PATIENT
  Age: 81 Year
  Sex: Female
  Weight: 41.2 kg

DRUGS (1)
  1. DIFLUCAN [Suspect]
     Active Substance: FLUCONAZOLE
     Indication: Fungal infection
     Dosage: 200 MG, 2X/DAY
     Route: 041
     Dates: start: 20220908, end: 20220908

REACTIONS (3)
  - Haemolysis [Recovering/Resolving]
  - Chromaturia [Recovering/Resolving]
  - Off label use [Unknown]

NARRATIVE: CASE EVENT DATE: 20220908
